FAERS Safety Report 18925645 (Version 4)
Quarter: 2024Q1

REPORT INFORMATION
  Report Type: Report from Study
  Country: FR (occurrence: None)
  Receive Date: 20210222
  Receipt Date: 20240129
  Transmission Date: 20240409
  Serious: Yes (Life-Threatening, Hospitalization, Other)
  Sender: FDA-Public Use
  Company Number: 2021A060682

PATIENT
  Age: 1 Day
  Sex: Female
  Weight: 2.4 kg

DRUGS (8)
  1. OMEPRAZOLE [Suspect]
     Active Substance: OMEPRAZOLE
     Route: 064
  2. OMEPRAZOLE [Suspect]
     Active Substance: OMEPRAZOLE
     Route: 064
  3. TERBUTALINE [Suspect]
     Active Substance: TERBUTALINE
     Route: 064
  4. AZACTAM [Suspect]
     Active Substance: AZTREONAM
     Route: 064
  5. CEFTAZIDIME [Suspect]
     Active Substance: CEFTAZIDIME
     Route: 064
  6. PANCREATIN [Suspect]
     Active Substance: PANCRELIPASE
     Route: 064
  7. UNSPECIFIED INGREDIENT [Suspect]
     Active Substance: UNSPECIFIED INGREDIENT
     Route: 064
  8. INSULIN NOS [Suspect]
     Active Substance: INSULIN NOS
     Route: 064

REACTIONS (3)
  - Foetal exposure during pregnancy [Unknown]
  - Pulmonary haemorrhage [Recovered/Resolved]
  - Neonatal respiratory distress syndrome [Unknown]

NARRATIVE: CASE EVENT DATE: 20210202
